FAERS Safety Report 5565416-9 (Version None)
Quarter: 2007Q4

REPORT INFORMATION
  Report Type: 
  Country: None (occurrence: None)
  Receive Date: 20071218
  Receipt Date: 20071207
  Transmission Date: 20080405
  Serious: Yes (Other)
  Sender: FDA-Public Use
  Company Number: IE-ELI_LILLY_AND_COMPANY-IE200712002026

PATIENT
  Age: 15 Year
  Sex: Male

DRUGS (2)
  1. STRATTERA [Suspect]
     Dosage: UNK, UNKNOWN
     Route: 065
     Dates: start: 20060101, end: 20070901
  2. STRATTERA [Suspect]
     Dosage: 60 MG, UNK
     Dates: start: 20070901

REACTIONS (2)
  - DEPRESSION [None]
  - SUICIDAL IDEATION [None]
